FAERS Safety Report 25759842 (Version 3)
Quarter: 2025Q4

REPORT INFORMATION
  Report Type: Spontaneous
  Country: US (occurrence: US)
  Receive Date: 20250904
  Receipt Date: 20251106
  Transmission Date: 20260118
  Serious: Yes (Other)
  Sender: SANOFI AVENTIS
  Company Number: US-SA-2025SA264594

PATIENT
  Age: 26 Year
  Sex: Female

DRUGS (1)
  1. DUPIXENT [Suspect]
     Active Substance: DUPILUMAB
     Indication: Eosinophilic oesophagitis
     Dosage: 300 MG, QW
     Route: 058
     Dates: start: 20250821

REACTIONS (6)
  - Oesophageal food impaction [Unknown]
  - Dysphagia [Unknown]
  - Retching [Unknown]
  - Nasal dryness [Unknown]
  - Dry mouth [Unknown]
  - Injection site rash [Unknown]

NARRATIVE: CASE EVENT DATE: 20250101
